FAERS Safety Report 5071703-3 (Version None)
Quarter: 2006Q3

REPORT INFORMATION
  Report Type: 
  Country: None (occurrence: None)
  Receive Date: 20060804
  Receipt Date: 20060724
  Transmission Date: 20061208
  Serious: Yes (Other)
  Sender: FDA-Public Use
  Company Number: PHNR2006AU00949

PATIENT
  Age: 90 Year
  Sex: Male

DRUGS (5)
  1. ZOMETA [Suspect]
     Indication: MULTIPLE MYELOMA
  2. CYCLOBLASTIN [Concomitant]
  3. DIGOXIN [Concomitant]
  4. LASIX [Concomitant]
  5. SLOW-K [Concomitant]
     Route: 048

REACTIONS (4)
  - EMPYEMA [None]
  - GINGIVAL ABSCESS [None]
  - OSTEONECROSIS [None]
  - TOOTH LOSS [None]
